FAERS Safety Report 6019539-0 (Version None)
Quarter: 2008Q4

REPORT INFORMATION
  Report Type: 
  Country: None (occurrence: None)
  Receive Date: 20081224
  Receipt Date: 20081217
  Transmission Date: 20090506
  Serious: Yes (Disabling, Other)
  Sender: FDA-Public Use
  Company Number: DK-AMGEN-US318404

PATIENT
  Sex: Female

DRUGS (3)
  1. ENBREL [Suspect]
     Indication: RHEUMATOID ARTHRITIS
     Route: 058
     Dates: start: 20080813, end: 20080821
  2. COZAAR [Concomitant]
     Indication: HYPERTENSION
  3. HUMIRA [Concomitant]

REACTIONS (4)
  - FEAR OF DEATH [None]
  - MONOPARESIS [None]
  - PALPITATIONS [None]
  - PARAESTHESIA [None]
